FAERS Safety Report 24693910 (Version 1)
Quarter: 2024Q4

REPORT INFORMATION
  Report Type: Spontaneous
  Country: US (occurrence: US)
  Receive Date: 20241204
  Receipt Date: 20241204
  Transmission Date: 20250115
  Serious: Yes (Hospitalization)
  Sender: PACIRA
  Company Number: US-ORG100016242-2023000324

PATIENT
  Age: 80 Year
  Sex: Female
  Weight: 79 kg

DRUGS (10)
  1. ZILRETTA [Suspect]
     Active Substance: TRIAMCINOLONE ACETONIDE
     Indication: Osteoarthritis
     Dosage: BOTH KNEES, 2CC 5 CC, EXP UU-MAY-2024
     Route: 014
     Dates: start: 20231017, end: 20231017
  2. Carafate 1g/10ml [Concomitant]
     Dosage: 1G/10ML 4 TIMES PER DAY, BEFORE MEALS AND BED TIME
     Route: 048
  3. CARVEDILOL [Concomitant]
     Active Substance: CARVEDILOL
     Dosage: 1 TABLET TWICE A DAY
     Route: 048
  4. DAPTOMYCIN [Concomitant]
     Active Substance: DAPTOMYCIN
     Route: 042
  5. DOCUSATE SODIUM [Concomitant]
     Active Substance: DOCUSATE SODIUM
     Dosage: ONE CAPSULE TWICE A DAY
     Route: 048
  6. HEPARIN SODIUM [Concomitant]
     Active Substance: HEPARIN SODIUM
     Dosage: 1 ML TWICE A DAY
     Route: 058
  7. IBUPROFEN [Concomitant]
     Active Substance: IBUPROFEN
     Dosage: 200 MG, EVERY FOUR HOURS, AS NEEDED
     Route: 048
  8. Levothyroxine 100 mcg (0.1) oral tablet [Concomitant]
     Route: 048
  9. Protonix 40 mg oral [Concomitant]
     Dosage: ONE TABLET TWICE A DAY
     Route: 048
  10. TYLENOL [Concomitant]
     Active Substance: ACETAMINOPHEN
     Dosage: ONE TABLET, EVERY FOUR HOURS, AS NEEDED
     Route: 048

REACTIONS (9)
  - Injection site joint infection [Recovering/Resolving]
  - Staphylococcal infection [Recovering/Resolving]
  - Hepatic enzyme increased [Recovering/Resolving]
  - Arthralgia [Recovering/Resolving]
  - Joint effusion [Recovering/Resolving]
  - Infection in an immunocompromised host [Unknown]
  - Abdominal pain upper [Recovered/Resolved]
  - COVID-19 [Unknown]
  - Erythema [Unknown]

NARRATIVE: CASE EVENT DATE: 20231028
